FAERS Safety Report 11090918 (Version 1)
Quarter: 2015Q2

REPORT INFORMATION
  Report Type: Spontaneous
  Country: US (occurrence: US)
  Receive Date: 20150505
  Receipt Date: 20150505
  Transmission Date: 20150821
  Serious: No
  Sender: FDA-Public Use
  Company Number: US-PFIZER INC-2014246710

PATIENT
  Sex: Female

DRUGS (3)
  1. AXID AR [Suspect]
     Active Substance: NIZATIDINE
     Dosage: UNK
  2. NEXIUM 24HR [Suspect]
     Active Substance: ESOMEPRAZOLE MAGNESIUM
  3. NEXIUM 24HR [Suspect]
     Active Substance: ESOMEPRAZOLE MAGNESIUM
     Dosage: UNK
     Dates: start: 2014

REACTIONS (6)
  - Diarrhoea [Unknown]
  - Product packaging quantity issue [Unknown]
  - Poor quality drug administered [Unknown]
  - Muscle spasms [Unknown]
  - Pain [Unknown]
  - Dizziness [Unknown]

NARRATIVE: CASE EVENT DATE: 2014
